FAERS Safety Report 4337940-8 (Version None)
Quarter: 2004Q1

REPORT INFORMATION
  Report Type: 
  Country: None (occurrence: None)
  Receive Date: 20040329
  Receipt Date: 20040127
  Transmission Date: 20041129
  Serious: No
  Sender: FDA-Public Use
  Company Number: USA040157701

PATIENT
  Age: 54 Year
  Sex: Female
  Weight: 59 kg

DRUGS (2)
  1. STRATTERA [Suspect]
     Dosage: 120 MG/DAY
  2. WELLBUTRIN [Concomitant]

REACTIONS (1)
  - ACCIDENTAL OVERDOSE [None]
